FAERS Safety Report 9355556 (Version 2)
Quarter: 2013Q3

REPORT INFORMATION
  Report Type: Spontaneous
  Country: IT (occurrence: IT)
  Receive Date: 20130619
  Receipt Date: 20130730
  Transmission Date: 20140515
  Serious: Yes (Hospitalization)
  Sender: FDA-Public Use
  Company Number: IT-PFIZER INC-2013182880

PATIENT
  Age: 64 Year
  Sex: Male
  Weight: 59 kg

DRUGS (7)
  1. IRINOTECAN HCL [Suspect]
     Indication: COLON NEOPLASM
     Dosage: 180 MG/M2, CYCLIC
     Route: 042
     Dates: start: 20121220, end: 20130426
  2. AVASTIN [Suspect]
     Indication: COLON NEOPLASM
     Dosage: 400 MG, CYCLIC
     Route: 042
     Dates: start: 20130222, end: 20130426
  3. AVASTIN [Suspect]
     Dosage: 35 MG, CYCLIC
     Route: 042
     Dates: start: 20130222, end: 20130426
  4. ONDANSETRON HYDROCHLORIDE [Suspect]
     Indication: PREMEDICATION
     Dosage: 8 MG, CYCLIC
     Route: 042
     Dates: start: 20121220, end: 20130426
  5. ZANTAC [Concomitant]
     Indication: PREMEDICATION
     Dosage: UNK
     Dates: start: 20121220, end: 20130426
  6. XELODA [Concomitant]
     Indication: COLON NEOPLASM
     Dosage: UNK
     Dates: start: 20121220, end: 20130426
  7. DEXAMETHASONE PHOSPHATE [Concomitant]
     Indication: PREMEDICATION
     Dosage: UNK
     Dates: start: 20121220, end: 20130426

REACTIONS (2)
  - Hypertension [Recovered/Resolved]
  - Subileus [Recovered/Resolved]
